FAERS Safety Report 14036624 (Version 1)
Quarter: 2017Q4

REPORT INFORMATION
  Report Type: Spontaneous
  Country: US (occurrence: US)
  Receive Date: 20171003
  Receipt Date: 20171003
  Transmission Date: 20180321
  Serious: No
  Sender: FDA-Public Use
  Company Number: US-ROCHE-1957582

PATIENT
  Age: 66 Year
  Sex: Male

DRUGS (1)
  1. ZELBORAF [Suspect]
     Active Substance: VEMURAFENIB
     Indication: METASTATIC MALIGNANT MELANOMA
     Route: 065

REACTIONS (5)
  - Rash [Recovering/Resolving]
  - Malaise [Unknown]
  - Dupuytren^s contracture [Unknown]
  - Arthralgia [Unknown]
  - Photosensitivity reaction [Unknown]
